FAERS Safety Report 9106619 (Version 2)
Quarter: 2013Q3

REPORT INFORMATION
  Report Type: Spontaneous
  Country: FR (occurrence: FR)
  Receive Date: 20130221
  Receipt Date: 20130708
  Transmission Date: 20140515
  Serious: Yes (Hospitalization)
  Sender: FDA-Public Use
  Company Number: PHHY2013FR015457

PATIENT
  Age: 85 Year
  Sex: Female

DRUGS (9)
  1. TASIGNA [Suspect]
  2. TASIGNA [Suspect]
     Dosage: 150 MG, 1DF MORNING, 2DF EVENING
     Route: 048
     Dates: start: 20120907
  3. OMEPRAZOLE [Concomitant]
     Dosage: 10 MG, BID
     Route: 048
  4. DOMPERIDONE [Concomitant]
     Dosage: 10 MG, TID
     Route: 048
  5. MEBEVERINE [Concomitant]
     Dosage: 1 DF, BID
     Route: 048
  6. TRANSIPEG//MACROGOL [Concomitant]
     Dosage: 1 DF, QD
     Route: 048
  7. LUBENTYL [Concomitant]
     Dosage: 5 ML, QD
     Route: 048
  8. OROCAL D3 [Concomitant]
     Dosage: 2 DF, QD
     Route: 048
  9. DOLIPRANE [Concomitant]
     Dosage: 1000 MG, 1DF EVERY 6 HOURS
     Route: 048

REACTIONS (5)
  - Transient ischaemic attack [Recovered/Resolved]
  - Aphasia [Recovered/Resolved]
  - Hemiparesis [Recovered/Resolved]
  - Hypercholesterolaemia [Recovered/Resolved]
  - Supraventricular extrasystoles [Unknown]
